FAERS Safety Report 8572045-1 (Version None)
Quarter: 2012Q3

REPORT INFORMATION
  Report Type: 
  Country: None (occurrence: None)
  Receive Date: 20120806
  Receipt Date: 20120724
  Transmission Date: 20120928
  Serious: Yes (Other)
  Sender: FDA-Public Use
  Company Number: US-SANOFI-AVENTIS-2012SA054098

PATIENT
  Age: 53 Year
  Sex: Female

DRUGS (6)
  1. PRAMIPEXOLE DIHYCHLORIDE [Concomitant]
  2. AMBIEN [Suspect]
     Indication: INSOMNIA
     Route: 065
  3. TRAZODONE HYDROCHLORIDE [Concomitant]
  4. ACETAMINOPHEN AND TRAMADOL HCL [Concomitant]
  5. VALSARTAN [Concomitant]
  6. CLONAZEPAM [Concomitant]

REACTIONS (3)
  - ABNORMAL BEHAVIOUR [None]
  - PSYCHOMOTOR HYPERACTIVITY [None]
  - BIPOLAR I DISORDER [None]
